FAERS Safety Report 10067142 (Version 3)
Quarter: 2014Q2

REPORT INFORMATION
  Report Type: Report from Study
  Country: US (occurrence: US)
  Receive Date: 20140409
  Receipt Date: 20140619
  Transmission Date: 20141212
  Serious: Yes (Hospitalization)
  Sender: FDA-Public Use
  Company Number: US-ROCHE-1378260

PATIENT
  Age: 67 Year
  Sex: Male

DRUGS (49)
  1. VEMURAFENIB [Suspect]
     Indication: PAPILLARY THYROID CANCER
     Route: 048
     Dates: start: 20120809
  2. VEMURAFENIB [Suspect]
     Route: 048
     Dates: start: 20120816, end: 20120822
  3. VEMURAFENIB [Suspect]
     Route: 048
     Dates: start: 20120823, end: 20120830
  4. VEMURAFENIB [Suspect]
     Route: 048
     Dates: start: 20120831, end: 20120913
  5. VEMURAFENIB [Suspect]
     Route: 048
     Dates: start: 20120914, end: 20120917
  6. VEMURAFENIB [Suspect]
     Route: 048
     Dates: start: 20120917, end: 20121003
  7. VEMURAFENIB [Suspect]
     Route: 048
     Dates: start: 20121004, end: 20121005
  8. VEMURAFENIB [Suspect]
     Route: 048
     Dates: start: 20121019, end: 20121019
  9. VEMURAFENIB [Suspect]
     Route: 048
     Dates: end: 20121119
  10. VEMURAFENIB [Suspect]
     Route: 048
     Dates: start: 20121120, end: 20130222
  11. VEMURAFENIB [Suspect]
     Route: 048
     Dates: start: 20130222, end: 20130225
  12. VEMURAFENIB [Suspect]
     Route: 048
     Dates: start: 20130225, end: 20130309
  13. VEMURAFENIB [Suspect]
     Route: 048
     Dates: start: 20130310, end: 20130330
  14. VEMURAFENIB [Suspect]
     Route: 048
     Dates: start: 20130331, end: 20130521
  15. VEMURAFENIB [Suspect]
     Route: 048
     Dates: start: 20130521, end: 20130803
  16. VEMURAFENIB [Suspect]
     Route: 048
     Dates: start: 20130804, end: 20130828
  17. VEMURAFENIB [Suspect]
     Route: 048
     Dates: start: 20130829, end: 20131118
  18. VEMURAFENIB [Suspect]
     Route: 048
     Dates: start: 20131119, end: 20131125
  19. VEMURAFENIB [Suspect]
     Route: 048
     Dates: start: 20131126, end: 20131129
  20. VEMURAFENIB [Suspect]
     Route: 048
     Dates: start: 20131130, end: 20131210
  21. VEMURAFENIB [Suspect]
     Route: 048
     Dates: start: 20131211, end: 20131225
  22. VEMURAFENIB [Suspect]
     Route: 048
     Dates: start: 20131225, end: 20140128
  23. VEMURAFENIB [Suspect]
     Route: 048
     Dates: start: 20140129, end: 20140131
  24. VEMURAFENIB [Suspect]
     Route: 048
     Dates: start: 20140208
  25. NORMAL SALINE [Concomitant]
     Indication: RECTAL HAEMORRHAGE
     Route: 042
     Dates: start: 20120917, end: 20120917
  26. NORMAL SALINE [Concomitant]
     Indication: DEHYDRATION
     Route: 042
     Dates: start: 20130907, end: 20130910
  27. LEVOTHYROXINE [Concomitant]
     Indication: HYPOTHYROIDISM
     Route: 048
     Dates: start: 20121004
  28. FINASTERIDE [Concomitant]
     Indication: BENIGN PROSTATIC HYPERPLASIA
     Route: 048
     Dates: start: 20120823
  29. FUROSEMIDE [Concomitant]
     Indication: OEDEMA
     Route: 048
     Dates: start: 20120823, end: 20120906
  30. PREDNISONE [Concomitant]
     Indication: RASH
     Route: 048
     Dates: start: 20120823, end: 20120830
  31. CLOBETASOL [Concomitant]
     Indication: PRURITUS
     Route: 061
     Dates: start: 20120823
  32. LIQUID NITROGEN [Concomitant]
     Indication: HYPERKERATOSIS
     Route: 061
     Dates: start: 20120830, end: 20120830
  33. FLAGYL [Concomitant]
     Indication: PNEUMONIA
     Route: 048
     Dates: start: 20131126
  34. CEFTIN [Concomitant]
     Indication: PNEUMONIA
     Route: 048
     Dates: start: 20131126
  35. ARIXTRA [Concomitant]
     Indication: CAROTID ARTERY STENOSIS
     Route: 058
     Dates: start: 20110303
  36. CLOPIDOGREL BISULFATE [Concomitant]
     Indication: CAROTID ARTERY STENOSIS
     Route: 048
     Dates: start: 20110209
  37. DILT-XR [Concomitant]
     Indication: HYPERTENSION
     Route: 048
     Dates: start: 20090802
  38. NEBIVOLOL [Concomitant]
     Indication: HYPERTENSION
     Route: 048
     Dates: start: 20120802
  39. SYNTHROID [Concomitant]
     Indication: HYPOTHYROIDISM
     Route: 048
     Dates: start: 19990803, end: 20121101
  40. SYNTHROID [Concomitant]
     Route: 048
     Dates: end: 20120809
  41. IBUPROFEN [Concomitant]
     Route: 048
     Dates: start: 20130201
  42. AMBIEN [Concomitant]
     Indication: INSOMNIA
     Dosage: AT BED TIME
     Route: 048
     Dates: start: 20010802
  43. LIPITOR [Concomitant]
     Indication: HYPERCHOLESTEROLAEMIA
     Route: 048
     Dates: start: 20090303
  44. LISINOPRIL [Concomitant]
     Indication: HYPERTENSION
     Route: 048
     Dates: start: 20090303
  45. MECLIZINE [Concomitant]
     Indication: VERTIGO
     Route: 048
     Dates: start: 20110603, end: 20130912
  46. FLOMAX (UNITED STATES) [Concomitant]
     Indication: BENIGN PROSTATIC HYPERPLASIA
     Route: 048
     Dates: start: 20020802
  47. CALCIUM CARBONATE [Concomitant]
     Route: 048
     Dates: start: 20120717
  48. FLUCONAZOLE [Concomitant]
     Indication: CANDIDA INFECTION
     Route: 048
     Dates: start: 20140205
  49. FLUCONAZOLE [Concomitant]
     Route: 048
     Dates: start: 20140206, end: 20140225

REACTIONS (1)
  - Musculoskeletal chest pain [Recovered/Resolved]
